FAERS Safety Report 8033980-6 (Version None)
Quarter: 2012Q1

REPORT INFORMATION
  Report Type: 
  Country: None (occurrence: None)
  Receive Date: 20120110
  Receipt Date: 20111215
  Transmission Date: 20120608
  Serious: Yes (Disabling, Other)
  Sender: FDA-Public Use
  Company Number: US-MERCK-1201USA00691

PATIENT
  Age: 55 Year
  Sex: Male

DRUGS (3)
  1. ZOCOR [Suspect]
     Route: 048
     Dates: end: 20110601
  2. CRESTOR [Suspect]
     Route: 065
     Dates: end: 20110601
  3. LIPITOR [Suspect]
     Route: 065

REACTIONS (2)
  - MYOCARDIAL INFARCTION [None]
  - PAIN [None]
